FAERS Safety Report 21862456 (Version 4)
Quarter: 2023Q1

REPORT INFORMATION
  Report Type: Report from Study
  Country: US (occurrence: US)
  Receive Date: 20230114
  Receipt Date: 20230216
  Transmission Date: 20230418
  Serious: No
  Sender: FDA-Public Use
  Company Number: US-002147023-NVSC2023US008566

PATIENT
  Sex: Female

DRUGS (1)
  1. KISQALI [Suspect]
     Active Substance: RIBOCICLIB
     Indication: Breast cancer
     Dosage: 600 MG, BID
     Route: 048
     Dates: end: 20221227

REACTIONS (3)
  - Hormone level abnormal [Unknown]
  - Inappropriate schedule of product administration [Unknown]
  - Rash [Unknown]
